FAERS Safety Report 19822831 (Version 1)
Quarter: 2021Q3

REPORT INFORMATION
  Report Type: Spontaneous
  Country: CL (occurrence: CL)
  Receive Date: 20210913
  Receipt Date: 20210913
  Transmission Date: 20211014
  Serious: Yes (Death)
  Sender: FDA-Public Use
  Company Number: CL-PFIZER INC-202101175308

PATIENT

DRUGS (2)
  1. IBRANCE [Suspect]
     Active Substance: PALBOCICLIB
     Indication: NEOPLASM MALIGNANT
     Dosage: UNK
  2. FULVESTRANT. [Concomitant]
     Active Substance: FULVESTRANT
     Indication: NEOPLASM MALIGNANT
     Dosage: UNK

REACTIONS (1)
  - Death [Fatal]
